FAERS Safety Report 5530867-5 (Version None)
Quarter: 2007Q4

REPORT INFORMATION
  Report Type: 
  Country: None (occurrence: None)
  Receive Date: 20071130
  Receipt Date: 20071119
  Transmission Date: 20080405
  Serious: Yes (Hospitalization, Other)
  Sender: FDA-Public Use
  Company Number: GR-PFIZER INC-2007097673

PATIENT
  Age: 68 Year
  Sex: Female

DRUGS (2)
  1. ZYVOX [Suspect]
     Indication: INCISION SITE INFECTION
     Route: 048
     Dates: start: 20070924, end: 20071010
  2. ZINADOL [Suspect]
     Indication: INCISION SITE INFECTION
     Route: 048
     Dates: start: 20070924, end: 20071010

REACTIONS (1)
  - VASCULITIS [None]
